FAERS Safety Report 25440848 (Version 1)
Quarter: 2025Q2

REPORT INFORMATION
  Report Type: Spontaneous
  Country: GB (occurrence: GB)
  Receive Date: 20250616
  Receipt Date: 20250616
  Transmission Date: 20250717
  Serious: Yes (Hospitalization, Other)
  Sender: TORRENT PHARMA INC.
  Company Number: None

PATIENT
  Age: 46 Year
  Sex: Male
  Weight: 68 kg

DRUGS (1)
  1. CETIRIZINE [Suspect]
     Active Substance: CETIRIZINE HYDROCHLORIDE
     Indication: Multiple allergies
     Dosage: 10MG ONCE DAILY
     Route: 065
     Dates: start: 20250601

REACTIONS (5)
  - Seizure [Recovered/Resolved]
  - Syncope [Recovered/Resolved]
  - Dizziness [Unknown]
  - Disorientation [Unknown]
  - Memory impairment [Unknown]

NARRATIVE: CASE EVENT DATE: 20250608
